FAERS Safety Report 6619453-3 (Version None)
Quarter: 2010Q1

REPORT INFORMATION
  Report Type: 
  Country: None (occurrence: None)
  Receive Date: 20100309
  Receipt Date: 20100227
  Transmission Date: 20100710
  Serious: Yes (Other)
  Sender: FDA-Public Use
  Company Number: US-BAYER-201018067GPV

PATIENT
  Sex: Female

DRUGS (2)
  1. SORAFENIB [Suspect]
     Indication: OVARIAN CANCER
     Dosage: TOTAL DAILY DOSE: 800 MG
  2. BEVACIZUMAB [Suspect]
     Indication: OVARIAN CANCER

REACTIONS (1)
  - THROMBOSIS [None]
